FAERS Safety Report 6108392-2 (Version None)
Quarter: 2009Q1

REPORT INFORMATION
  Report Type: 
  Country: None (occurrence: None)
  Receive Date: 20090309
  Receipt Date: 20090224
  Transmission Date: 20090719
  Serious: Yes (Other)
  Sender: FDA-Public Use
  Company Number: PHHY2009BE06602

PATIENT

DRUGS (1)
  1. CATAFLAM [Suspect]
     Indication: HAEMORRHOIDS
     Dosage: 5 X 50 MG/DAY

REACTIONS (2)
  - DRUG EXPOSURE DURING PREGNANCY [None]
  - STILLBIRTH [None]
